FAERS Safety Report 4276346-7 (Version None)
Quarter: 2004Q1

REPORT INFORMATION
  Report Type: 
  Country: None (occurrence: None)
  Receive Date: 20040116
  Receipt Date: 20040107
  Transmission Date: 20041129
  Serious: Yes (Hospitalization)
  Sender: FDA-Public Use
  Company Number: 2003113130

PATIENT
  Sex: Female

DRUGS (4)
  1. NORVASC [Suspect]
     Indication: HYPERTENSION
     Dates: start: 20010116
  2. FOSINOPRIL SODIUM [Suspect]
     Indication: ILL-DEFINED DISORDER
  3. DYAZIDE [Suspect]
     Indication: ILL-DEFINED DISORDER
     Dates: start: 19970401, end: 20010116
  4. ALL OTHER THERAPEUTIC PRODUCTS [Suspect]
     Indication: ILL-DEFINED DISORDER

REACTIONS (8)
  - ANXIETY [None]
  - ARTHRALGIA [None]
  - EMOTIONAL DISTRESS [None]
  - INJURY [None]
  - PAIN [None]
  - PARKINSON'S DISEASE [None]
  - PERIARTHRITIS [None]
  - PHARMACEUTICAL PRODUCT COMPLAINT [None]
